FAERS Safety Report 5557213-5 (Version None)
Quarter: 2007Q4

REPORT INFORMATION
  Report Type: 
  Country: None (occurrence: None)
  Receive Date: 20071214
  Receipt Date: 20071204
  Transmission Date: 20080405
  Serious: Yes (Hospitalization, Other)
  Sender: FDA-Public Use
  Company Number: IL-NOVOPROD-268998

PATIENT
  Age: 4 Year
  Sex: Female
  Weight: 11 kg

DRUGS (1)
  1. NORDITROPIN [Suspect]
     Indication: SMALL FOR DATES BABY
     Dosage: .4 MG, QD
     Dates: start: 20070925

REACTIONS (1)
  - POLYARTHRITIS [None]
